FAERS Safety Report 8533610-0 (Version None)
Quarter: 2012Q3

REPORT INFORMATION
  Report Type: 
  Country: None (occurrence: None)
  Receive Date: 20120717
  Receipt Date: 20120717
  Transmission Date: 20120928
  Serious: Yes (Hospitalization, Disabling, Other)
  Sender: FDA-Public Use
  Company Number: None

PATIENT
  Sex: Male

DRUGS (1)
  1. LASIX [Suspect]
     Indication: CARDIAC FAILURE CONGESTIVE
     Dosage: 20 MG ONCE A DAY PO
     Route: 048
     Dates: start: 20000101, end: 20120704

REACTIONS (13)
  - ABASIA [None]
  - DRY SKIN [None]
  - IMMUNE SYSTEM DISORDER [None]
  - NEOPLASM MALIGNANT [None]
  - FEAR OF FALLING [None]
  - RASH [None]
  - URINARY TRACT INFECTION [None]
  - DECREASED APPETITE [None]
  - HAEMORRHAGE [None]
  - DEHYDRATION [None]
  - VERTIGO [None]
  - THINKING ABNORMAL [None]
  - DEPRESSION [None]
